FAERS Safety Report 8419631-7 (Version None)
Quarter: 2012Q2

REPORT INFORMATION
  Report Type: 
  Country: None (occurrence: None)
  Receive Date: 20120607
  Receipt Date: 20120529
  Transmission Date: 20120825
  Serious: Yes (Disabling, Other)
  Sender: FDA-Public Use
  Company Number: DE-BRISTOL-MYERS SQUIBB COMPANY-16490799

PATIENT
  Age: 6 Decade
  Sex: Male
  Weight: 85 kg

DRUGS (1)
  1. PRAVASTATIN SODIUM [Suspect]
     Indication: BLOOD CHOLESTEROL INCREASED
     Dosage: PRAVASTATIN N PRAVASIN 30 MG TABLETS FROM 2004-05 FOR INCREASED CHOLESTEROL
     Dates: start: 20040101, end: 20050101

REACTIONS (4)
  - MUSCLE RUPTURE [None]
  - MYALGIA [None]
  - MYOCARDIAL INFARCTION [None]
  - BLOOD CHOLESTEROL ABNORMAL [None]
